FAERS Safety Report 5915095-3 (Version None)
Quarter: 2008Q4

REPORT INFORMATION
  Report Type: 
  Country: None (occurrence: None)
  Receive Date: 20081010
  Receipt Date: 20080929
  Transmission Date: 20090506
  Serious: Yes (Life-Threatening)
  Sender: FDA-Public Use
  Company Number: B0528758A

PATIENT
  Sex: Female

DRUGS (5)
  1. ZOPHREN [Suspect]
     Route: 042
  2. TAXOTERE [Concomitant]
     Indication: BREAST CANCER
     Route: 042
  3. EPIRUBICIN [Concomitant]
     Indication: BREAST CANCER
     Route: 042
  4. CYCLOPHOSPHAMIDE [Concomitant]
     Indication: BREAST CANCER
     Route: 042
  5. FLUOROURACIL [Concomitant]
     Indication: BREAST CANCER
     Route: 042

REACTIONS (2)
  - FLATULENCE [None]
  - INTESTINAL OBSTRUCTION [None]
